FAERS Safety Report 17267444 (Version 5)
Quarter: 2021Q3

REPORT INFORMATION
  Report Type: Report from Study
  Country: US (occurrence: US)
  Receive Date: 20200114
  Receipt Date: 20210919
  Transmission Date: 20211014
  Serious: No
  Sender: FDA-Public Use
  Company Number: US-SA-2020SA008515

PATIENT
  Age: 61 Year
  Sex: Female
  Weight: 58.96 kg

DRUGS (16)
  1. IBUPROFEN. [Concomitant]
     Active Substance: IBUPROFEN
  2. VITAMIN D WITH OMEGA 3 [Concomitant]
  3. DUPILUMAB [Suspect]
     Active Substance: DUPILUMAB
     Dosage: 300 MG, QOW
     Route: 058
     Dates: start: 20200115, end: 20210329
  4. DUPILUMAB [Suspect]
     Active Substance: DUPILUMAB
     Dosage: 300 MG, QOW
     Route: 058
     Dates: start: 201912
  5. CALCIUM D3 [Concomitant]
     Active Substance: CALCIUM\CHOLECALCIFEROL
  6. DUPILUMAB [Suspect]
     Active Substance: DUPILUMAB
     Dosage: 600 MG, 1X
     Route: 058
     Dates: start: 20200101, end: 20200101
  7. FIBER [Concomitant]
     Active Substance: PSYLLIUM HUSK
     Dosage: 3.4 G/11G POWDER
  8. GARLIC [ALLIUM SATIVUM] [Concomitant]
     Active Substance: GARLIC
  9. COVID?19 VACCINE [Concomitant]
     Dosage: UNK
     Dates: start: 20210505
  10. DUPILUMAB [Suspect]
     Active Substance: DUPILUMAB
     Indication: DERMATITIS ATOPIC
     Dosage: 2 DF, 1X
     Route: 058
     Dates: start: 20191201, end: 20191201
  11. VITAMIN D [VITAMIN D NOS] [Concomitant]
     Active Substance: VITAMIN D NOS
  12. DUPILUMAB [Suspect]
     Active Substance: DUPILUMAB
     Dosage: 300 MG, QOW
     Route: 058
     Dates: start: 20210524
  13. ASPIRIN (E.C.) [Concomitant]
     Active Substance: ASPIRIN
  14. VITAMIN B12 [Concomitant]
     Active Substance: CYANOCOBALAMIN
  15. MULTIVITAMINS [VITAMINS NOS] [Concomitant]
     Active Substance: VITAMINS
     Dosage: UNK
     Route: 065
  16. COVID?19 VACCINE [Concomitant]
     Indication: COVID-19 IMMUNISATION
     Dates: start: 20210414

REACTIONS (6)
  - Injection site irritation [Recovered/Resolved]
  - Dermatitis atopic [Unknown]
  - Hypersomnia [Unknown]
  - Muscle twitching [Unknown]
  - Intentional dose omission [Unknown]
  - Injection site pain [Recovered/Resolved]

NARRATIVE: CASE EVENT DATE: 2020
